FAERS Safety Report 6457798-0 (Version None)
Quarter: 2009Q4

REPORT INFORMATION
  Report Type: 
  Country: None (occurrence: None)
  Receive Date: 20091125
  Receipt Date: 20091117
  Transmission Date: 20100525
  Serious: Yes (Other)
  Sender: FDA-Public Use
  Company Number: CH-ABBOTT-09P-151-0609106-00

PATIENT
  Age: 26 Year
  Sex: Female

DRUGS (2)
  1. REDUCTIL 10MG [Suspect]
     Indication: WEIGHT CONTROL
     Route: 048
     Dates: start: 20080505, end: 20080529
  2. XENICAL [Suspect]
     Indication: WEIGHT CONTROL
     Dates: start: 20080505, end: 20080529

REACTIONS (1)
  - OLIGOHYDRAMNIOS [None]
